FAERS Safety Report 25899505 (Version 1)
Quarter: 2025Q4

REPORT INFORMATION
  Report Type: Report from Study
  Country: US (occurrence: US)
  Receive Date: 20251009
  Receipt Date: 20251009
  Transmission Date: 20260117
  Serious: Yes (Other)
  Sender: GILEAD
  Company Number: US-GILEAD-2025-0731783

PATIENT

DRUGS (2)
  1. REMDESIVIR [Suspect]
     Active Substance: REMDESIVIR
     Indication: COVID-19
     Dosage: 200 MG INTRAVENOUSLY ON THE FIRST DAY
     Route: 042
     Dates: start: 202003
  2. REMDESIVIR [Suspect]
     Active Substance: REMDESIVIR
     Dosage: 100 MG DAILY BY AN INTRAVENOUS ROUTE FOR UP TO 10 DAYS
     Route: 042

REACTIONS (1)
  - Hepatotoxicity [Unknown]
